FAERS Safety Report 7694402-8 (Version None)
Quarter: 2011Q3

REPORT INFORMATION
  Report Type: 
  Country: None (occurrence: None)
  Receive Date: 20110819
  Receipt Date: 20110811
  Transmission Date: 20111222
  Serious: Yes (Other)
  Sender: FDA-Public Use
  Company Number: ES-SANOFI-AVENTIS-2011SA051653

PATIENT
  Age: 74 Year
  Sex: Male

DRUGS (5)
  1. PLAVIX [Suspect]
     Indication: ACUTE CORONARY SYNDROME
     Dosage: DOSAGE FORM CODED AS 82
     Route: 048
     Dates: start: 20110511, end: 20110511
  2. PANTOPRAZOLE [Concomitant]
     Indication: PROPHYLAXIS AGAINST GASTROINTESTINAL ULCER
     Route: 042
     Dates: start: 20110511, end: 20110511
  3. ASPIRIN [Interacting]
     Indication: ACUTE CORONARY SYNDROME
     Dosage: DOSAGE FORM CODED AS 9
     Route: 048
     Dates: start: 20110511, end: 20110511
  4. ARIXTRA [Interacting]
     Route: 058
     Dates: start: 20110511, end: 20110511
  5. BIVALIRUDIN [Interacting]
     Route: 042
     Dates: start: 20110511, end: 20110511

REACTIONS (3)
  - DRUG INTERACTION [None]
  - ANAEMIA [None]
  - COAGULOPATHY [None]
